FAERS Safety Report 13435059 (Version 1)
Quarter: 2017Q2

REPORT INFORMATION
  Report Type: Spontaneous
  Country: US (occurrence: US)
  Receive Date: 20170412
  Receipt Date: 20170412
  Transmission Date: 20170830
  Serious: No
  Sender: FDA-Public Use
  Company Number: US-SA-2016SA086034

PATIENT
  Sex: Female

DRUGS (2)
  1. ALLEGRA ALLERGY [Suspect]
     Active Substance: FEXOFENADINE HYDROCHLORIDE
     Indication: SEASONAL ALLERGY
     Route: 048
  2. ZYRTEC [Concomitant]
     Active Substance: CETIRIZINE HYDROCHLORIDE
     Route: 065

REACTIONS (8)
  - Vertigo [Unknown]
  - Nausea [Unknown]
  - Anxiety [Unknown]
  - Dizziness [Unknown]
  - Feeling drunk [Unknown]
  - Impaired driving ability [Unknown]
  - Headache [Unknown]
  - Fall [Unknown]
